FAERS Safety Report 5534775-5 (Version None)
Quarter: 2007Q4

REPORT INFORMATION
  Report Type: 
  Country: None (occurrence: None)
  Receive Date: 20071130
  Receipt Date: 20071126
  Transmission Date: 20080405
  Serious: Yes (Disabling, Other)
  Sender: FDA-Public Use
  Company Number: 2007RL000529

PATIENT
  Age: 37 Year
  Sex: Male
  Weight: 110 kg

DRUGS (3)
  1. PROPAFENONE HCL [Suspect]
     Indication: DRUG USE FOR UNKNOWN INDICATION
     Dosage: 150 MG; TID;
     Dates: start: 20071101, end: 20071112
  2. LASOPRAZOLE [Concomitant]
  3. ACETYLSALICYLIC ACID SRT [Concomitant]

REACTIONS (3)
  - BIPOLAR DISORDER [None]
  - MOOD SWINGS [None]
  - MYOCLONUS [None]
